FAERS Safety Report 5799778-4 (Version None)
Quarter: 2008Q3

REPORT INFORMATION
  Report Type: 
  Country: None (occurrence: None)
  Receive Date: 20080703
  Receipt Date: 20080626
  Transmission Date: 20090109
  Serious: Yes (Death)
  Sender: FDA-Public Use
  Company Number: BE-ABBOTT-08P-013-0459482-00

PATIENT
  Sex: Male
  Weight: 78 kg

DRUGS (2)
  1. LUCRIN TRIDEPOT 11.25 MG [Suspect]
     Indication: PROSTATE CANCER
     Dates: start: 20060130, end: 20080115
  2. BICALUTAMIDE [Concomitant]
     Indication: DRUG USE FOR UNKNOWN INDICATION
     Dates: end: 20060624

REACTIONS (1)
  - METASTASIS [None]
